FAERS Safety Report 8422828-3 (Version None)
Quarter: 2012Q2

REPORT INFORMATION
  Report Type: 
  Country: None (occurrence: None)
  Receive Date: 20120608
  Receipt Date: 20120604
  Transmission Date: 20120825
  Serious: Yes (Hospitalization)
  Sender: FDA-Public Use
  Company Number: US-ENDO PHARMACEUTICALS INC.-OPCR20120043

PATIENT
  Sex: Female

DRUGS (5)
  1. OPANA ER [Suspect]
     Indication: PRODUCT USED FOR UNKNOWN INDICATION
     Route: 048
     Dates: start: 20120101
  2. OPANA ER [Concomitant]
     Route: 048
     Dates: end: 20120101
  3. OPANA ER [Suspect]
     Route: 048
     Dates: start: 20120101
  4. OPANA ER [Concomitant]
     Route: 048
     Dates: end: 20120101
  5. OPANA ER [Concomitant]
     Indication: PRODUCT USED FOR UNKNOWN INDICATION
     Dosage: UNKNOWN
     Route: 048
     Dates: end: 20120101

REACTIONS (4)
  - INFLUENZA LIKE ILLNESS [None]
  - INTESTINAL OBSTRUCTION [None]
  - DRUG EFFECT DECREASED [None]
  - MEDICATION RESIDUE [None]
